FAERS Safety Report 9639395 (Version 1)
Quarter: 2013Q4

REPORT INFORMATION
  Report Type: Spontaneous
  Country: US (occurrence: US)
  Receive Date: 20131022
  Receipt Date: 20131022
  Transmission Date: 20140711
  Serious: Yes (Other)
  Sender: FDA-Public Use
  Company Number: US-RB-059645-13

PATIENT
  Age: 24 Month
  Sex: Female

DRUGS (1)
  1. SUBOXONE FILM [Suspect]
     Indication: ACCIDENTAL EXPOSURE TO PRODUCT BY CHILD
     Dosage: SUBOXONE FILM
     Route: 065
     Dates: start: 20131010, end: 20131010

REACTIONS (2)
  - Accidental exposure to product by child [Recovered/Resolved]
  - Loss of consciousness [Unknown]
